FAERS Safety Report 24662400 (Version 1)
Quarter: 2024Q4

REPORT INFORMATION
  Report Type: Spontaneous
  Country: JP (occurrence: JP)
  Receive Date: 20241125
  Receipt Date: 20241125
  Transmission Date: 20250115
  Serious: Yes (Other)
  Sender: SANDOZ
  Company Number: JP-SANDOZ-SDZ2024JP096984

PATIENT
  Age: 71 Year
  Sex: Female

DRUGS (8)
  1. CARBOPLATIN [Concomitant]
     Active Substance: CARBOPLATIN
     Indication: Malignant peritoneal neoplasm
     Dosage: UNK
     Route: 065
  2. NIRAPARIB TOSYLATE MONOHYDRATE [Concomitant]
     Active Substance: NIRAPARIB TOSYLATE MONOHYDRATE
     Dosage: 100MG/3DAYS
     Route: 065
  3. NIRAPARIB TOSYLATE MONOHYDRATE [Concomitant]
     Active Substance: NIRAPARIB TOSYLATE MONOHYDRATE
     Indication: Product used for unknown indication
     Dosage: UNK
     Route: 065
  4. NIRAPARIB TOSYLATE MONOHYDRATE [Concomitant]
     Active Substance: NIRAPARIB TOSYLATE MONOHYDRATE
     Dosage: UNK
     Route: 065
  5. CYCLOSPORINE [Interacting]
     Active Substance: CYCLOSPORINE
     Indication: Immunosuppressant drug therapy
     Dosage: UNK
     Route: 048
  6. DECADRON (DEXAMETHASONE SODIUM PHOSPHATE) [Interacting]
     Active Substance: DEXAMETHASONE SODIUM PHOSPHATE
     Indication: Prophylaxis of nausea and vomiting
     Dosage: UNK
     Route: 065
  7. PACLITAXEL [Interacting]
     Active Substance: PACLITAXEL
     Dosage: 60% DOSE
     Route: 065
  8. PACLITAXEL [Interacting]
     Active Substance: PACLITAXEL
     Indication: Malignant peritoneal neoplasm
     Dosage: 80% DOSE
     Route: 065

REACTIONS (1)
  - Drug interaction [Unknown]
